FAERS Safety Report 8604865 (Version 3)
Quarter: 2013Q4

REPORT INFORMATION
  Report Type: Spontaneous
  Country: US (occurrence: None)
  Receive Date: 20120524
  Receipt Date: 20131223
  Transmission Date: 20140711
  Serious: Yes (Other)
  Sender: FDA-Public Use
  Company Number: 217475

PATIENT
  Age: 42 Year
  Sex: Female

DRUGS (1)
  1. PICATO [Suspect]
     Indication: ACTINIC KERATOSIS
     Dosage: (1 IN 1 D), TOPICAL
     Route: 061
     Dates: start: 20120501, end: 20120502

REACTIONS (12)
  - Erythema [None]
  - Pyrexia [None]
  - Blister [None]
  - Pain [None]
  - Rash [None]
  - Skin exfoliation [None]
  - Application site pain [None]
  - Application site erythema [None]
  - Application site pustules [None]
  - Application site vesicles [None]
  - Application site rash [None]
  - Application site exfoliation [None]
